FAERS Safety Report 18680400 (Version 2)
Quarter: 2021Q1

REPORT INFORMATION
  Report Type: Spontaneous
  Country: JP (occurrence: JP)
  Receive Date: 20201230
  Receipt Date: 20210113
  Transmission Date: 20210419
  Serious: Yes (Hospitalization, Other)
  Sender: FDA-Public Use
  Company Number: JP-ABBVIE-20P-087-3710087-00

PATIENT
  Age: 78 Year
  Sex: Male

DRUGS (1)
  1. LEUPLIN [Suspect]
     Active Substance: LEUPROLIDE ACETATE
     Indication: PROSTATE CANCER
     Dosage: 22.5 MILLIGRAM; PRO
     Route: 058
     Dates: start: 201806

REACTIONS (1)
  - Sarcoma of skin [Recovered/Resolved]

NARRATIVE: CASE EVENT DATE: 201906
